FAERS Safety Report 7634013-3 (Version None)
Quarter: 2011Q3

REPORT INFORMATION
  Report Type: 
  Country: None (occurrence: None)
  Receive Date: 20110714
  Receipt Date: 20110325
  Transmission Date: 20111222
  Serious: Yes (Life-Threatening, Disabling, Other)
  Sender: FDA-Public Use
  Company Number: 2011SP013874

PATIENT
  Age: 63 Year
  Weight: 126 kg

DRUGS (1)
  1. INTEGRILIN [Suspect]
     Indication: CATHETERISATION CARDIAC
     Dosage: IV
     Route: 042
     Dates: start: 20110324, end: 20110324

REACTIONS (1)
  - CEREBROVASCULAR ACCIDENT [None]
